FAERS Safety Report 7736427-X (Version None)
Quarter: 2011Q3

REPORT INFORMATION
  Report Type: 
  Country: None (occurrence: None)
  Receive Date: 20110908
  Receipt Date: 20110831
  Transmission Date: 20111222
  Serious: Yes (Death, Hospitalization)
  Sender: FDA-Public Use
  Company Number: CH-SANOFI-AVENTIS-2011SA055878

PATIENT
  Age: 68 Year
  Sex: Male
  Weight: 90 kg

DRUGS (9)
  1. ALL OTHER THERAPEUTIC PRODUCTS [Concomitant]
     Indication: PREMEDICATION
     Route: 042
  2. JEVTANA KIT [Suspect]
     Indication: PROSTATE CANCER
     Route: 042
     Dates: start: 20110131, end: 20110131
  3. ANZEMET [Concomitant]
     Indication: PREMEDICATION
     Route: 042
  4. DEXAMETHASONE [Concomitant]
     Indication: PREMEDICATION
  5. PREDNISONE [Concomitant]
     Indication: PROSTATE CANCER
     Route: 048
     Dates: start: 20110131
  6. JEVTANA KIT [Suspect]
     Route: 042
     Dates: start: 20110627, end: 20110627
  7. ZOMETA [Concomitant]
     Route: 042
  8. CLEMASTINE FUMARATE [Concomitant]
     Indication: PREMEDICATION
     Route: 042
  9. ZANTAC [Concomitant]
     Indication: PREMEDICATION
     Route: 042

REACTIONS (2)
  - PROCEDURAL COMPLICATION [None]
  - CYSTITIS HAEMORRHAGIC [None]
